FAERS Safety Report 6589424-4 (Version None)
Quarter: 2010Q1

REPORT INFORMATION
  Report Type: 
  Country: None (occurrence: None)
  Receive Date: 20100213
  Receipt Date: 20100125
  Transmission Date: 20100710
  Serious: Yes (Death, Hospitalization)
  Sender: FDA-Public Use
  Company Number: DSA_42500_2010

PATIENT
  Age: 64 Year
  Sex: Male

DRUGS (9)
  1. VASERETIC [Suspect]
     Indication: VENTRICULAR TACHYARRHYTHMIA
     Dosage: (DF ORAL)
     Route: 048
     Dates: start: 20080101, end: 20091103
  2. COSOPT [Suspect]
     Indication: GLAUCOMA
     Dosage: (1 GTT BID OPHTHALMIC)
     Route: 047
     Dates: start: 20091020, end: 20091103
  3. DIAMOX SRC [Suspect]
     Indication: GLAUCOMA
     Dosage: (0.5 MG BID ORAL)
     Route: 048
     Dates: start: 20091020, end: 20091103
  4. GLUCOPHAGE [Suspect]
     Indication: TYPE 2 DIABETES MELLITUS
     Dosage: (1000 MG QD ORAL)
     Route: 048
     Dates: end: 20091103
  5. GLICLAZIDE [Suspect]
     Indication: TYPE 2 DIABETES MELLITUS
     Dosage: (2 DF QD ORAL)
     Route: 048
     Dates: end: 20091103
  6. NEBIVOLOL HCL [Suspect]
     Indication: VENTRICULAR TACHYARRHYTHMIA
     Dosage: (5 MG QD ORAL)
     Route: 048
     Dates: end: 20091103
  7. BARACLUDE [Suspect]
     Indication: HEPATITIS B
     Dosage: (1 DF QD ORAL)
     Route: 048
     Dates: end: 20091103
  8. FLUINDIONE [Suspect]
  9. LATANOPROST [Concomitant]

REACTIONS (19)
  - ASCITES [None]
  - CARDIO-RESPIRATORY ARREST [None]
  - CEREBRAL DISORDER [None]
  - COMA [None]
  - ELECTROCARDIOGRAM QT PROLONGED [None]
  - ESCHERICHIA INFECTION [None]
  - HEPATOMEGALY [None]
  - HYPERTONIA [None]
  - HYPOKALAEMIA [None]
  - HYPOTONIA [None]
  - LACTIC ACIDOSIS [None]
  - METABOLIC ACIDOSIS [None]
  - NEUROLOGICAL DECOMPENSATION [None]
  - PAIN [None]
  - RECTAL HAEMORRHAGE [None]
  - RENAL FAILURE [None]
  - SHOCK [None]
  - TONIC CLONIC MOVEMENTS [None]
  - VENTRICULAR TACHYCARDIA [None]
